FAERS Safety Report 18351819 (Version 1)
Quarter: 2020Q4

REPORT INFORMATION
  Report Type: Spontaneous
  Country: US (occurrence: US)
  Receive Date: 20201006
  Receipt Date: 20201006
  Transmission Date: 20210114
  Serious: Yes (Hospitalization)
  Sender: FDA-Public Use
  Company Number: NVSC2020US262408

PATIENT
  Sex: Female

DRUGS (1)
  1. AFINITOR [Suspect]
     Active Substance: EVEROLIMUS
     Indication: BREAST CANCER METASTATIC
     Dosage: UNK
     Route: 065

REACTIONS (6)
  - Nervousness [Unknown]
  - Oesophageal pain [Unknown]
  - Blood potassium decreased [Unknown]
  - Tongue discomfort [Unknown]
  - Feeding disorder [Unknown]
  - Dysphagia [Unknown]
